FAERS Safety Report 10050112 (Version 1)
Quarter: 2014Q2

REPORT INFORMATION
  Report Type: Report from Study
  Country: KR (occurrence: KR)
  Receive Date: 20140401
  Receipt Date: 20140401
  Transmission Date: 20141212
  Serious: Yes (Other)
  Sender: FDA-Public Use
  Company Number: KR-BAYER-2014-042162

PATIENT
  Age: 42 Year
  Sex: Female

DRUGS (1)
  1. BETAFERON [Suspect]

REACTIONS (1)
  - Pyoderma gangrenosum [None]
